FAERS Safety Report 26129925 (Version 2)
Quarter: 2025Q4

REPORT INFORMATION
  Report Type: Spontaneous
  Country: PR (occurrence: PR)
  Receive Date: 20251208
  Receipt Date: 20251217
  Transmission Date: 20260118
  Serious: Yes (Other)
  Sender: ACCORD
  Company Number: PR-Accord-516554

PATIENT
  Age: 44 Year
  Sex: Female

DRUGS (6)
  1. CISPLATIN [Suspect]
     Active Substance: CISPLATIN
     Indication: Cholangiocarcinoma
     Dosage: SIX CYCLES
  2. GEMCITABINE [Suspect]
     Active Substance: GEMCITABINE
     Indication: Cholangiocarcinoma
     Dosage: 6 CYCLE
  3. DURVALUMAB [Suspect]
     Active Substance: DURVALUMAB
     Indication: Cholangiocarcinoma
     Dosage: SIX CYCLES
  4. GEMCITABINE [Suspect]
     Active Substance: GEMCITABINE
     Indication: Adrenal gland cancer metastatic
     Dosage: 6 CYCLE
  5. DURVALUMAB [Suspect]
     Active Substance: DURVALUMAB
     Indication: Adrenal gland cancer metastatic
     Dosage: SIX CYCLES
  6. CISPLATIN [Suspect]
     Active Substance: CISPLATIN
     Indication: Adrenal gland cancer metastatic
     Dosage: SIX CYCLES

REACTIONS (1)
  - Immune-mediated thyroiditis [Unknown]
